FAERS Safety Report 17107968 (Version 1)
Quarter: 2019Q4

REPORT INFORMATION
  Report Type: Spontaneous
  Country: PT (occurrence: FR)
  Receive Date: 20191203
  Receipt Date: 20191203
  Transmission Date: 20200122
  Serious: Yes (Life-Threatening, Hospitalization, Other)
  Sender: FDA-Public Use
  Company Number: PT-SUNOVION-2019SUN005288

PATIENT

DRUGS (7)
  1. PANTOPRAZOLE [Concomitant]
     Active Substance: PANTOPRAZOLE
     Indication: PRODUCT USED FOR UNKNOWN INDICATION
     Route: 065
  2. ZEBINIX [Suspect]
     Active Substance: ESLICARBAZEPINE ACETATE
     Indication: EPILEPSY
     Dosage: DOSE NOT PROVIDED
     Route: 065
     Dates: start: 201906
  3. SERESTA [Suspect]
     Active Substance: OXAZEPAM
     Indication: COGNITIVE DISORDER
     Dosage: DOSE NOT PROVIDED
     Route: 065
  4. TRILEPTAL [Suspect]
     Active Substance: OXCARBAZEPINE
     Indication: PRODUCT USED FOR UNKNOWN INDICATION
     Dosage: DOSE NOT PROVIDED
     Route: 065
  5. OTEZLA [Suspect]
     Active Substance: APREMILAST
     Indication: NAIL PSORIASIS
     Dosage: INITIATION KIT
     Route: 048
     Dates: start: 20190910, end: 20190918
  6. ZOPICLONE [Suspect]
     Active Substance: ZOPICLONE
     Indication: COGNITIVE DISORDER
     Dosage: DOSE NOT PROVIDED
     Route: 065
  7. KEPPRA [Concomitant]
     Active Substance: LEVETIRACETAM
     Indication: COGNITIVE DISORDER
     Dosage: DOSE NOT PROVIDED
     Route: 065

REACTIONS (3)
  - Suicide attempt [Recovered/Resolved]
  - Pulmonary embolism [Unknown]
  - Labelled drug-drug interaction medication error [Unknown]

NARRATIVE: CASE EVENT DATE: 20190918
